FAERS Safety Report 6636803-2 (Version None)
Quarter: 2010Q1

REPORT INFORMATION
  Report Type: 
  Country: None (occurrence: None)
  Receive Date: 20100316
  Receipt Date: 20100308
  Transmission Date: 20100710
  Serious: Yes (Disabling)
  Sender: FDA-Public Use
  Company Number: GB-PFIZER INC-2010020475

PATIENT
  Age: 79 Year
  Sex: Male

DRUGS (4)
  1. CELEBREX [Suspect]
     Indication: OSTEOARTHRITIS
     Dosage: 200 MG, UNK
     Route: 048
     Dates: start: 20091229, end: 20100122
  2. CODEINE [Concomitant]
     Dosage: 15 MG, AS NEEDED
     Route: 048
  3. LATANOPROST [Concomitant]
     Dosage: UNK
     Route: 047
     Dates: start: 20080625
  4. OMEPRAZOLE [Concomitant]
     Indication: PROPHYLAXIS
     Dosage: 10 MG, UNK
     Route: 048
     Dates: start: 20091229

REACTIONS (10)
  - BRADYKINESIA [None]
  - COGWHEEL RIGIDITY [None]
  - EXTRAPYRAMIDAL DISORDER [None]
  - FACIAL PARESIS [None]
  - GAIT DISTURBANCE [None]
  - HYPOKINESIA [None]
  - MOBILITY DECREASED [None]
  - MUSCULAR WEAKNESS [None]
  - MUSCULOSKELETAL STIFFNESS [None]
  - PARKINSONISM [None]
